FAERS Safety Report 21920967 (Version 2)
Quarter: 2023Q2

REPORT INFORMATION
  Report Type: Spontaneous
  Country: US (occurrence: US)
  Receive Date: 20230127
  Receipt Date: 20230609
  Transmission Date: 20230721
  Serious: Yes (Other)
  Sender: FDA-Public Use
  Company Number: US-ABBVIE-4285520

PATIENT
  Age: 14 Year
  Sex: Female
  Weight: 43 kg

DRUGS (9)
  1. HUMIRA [Suspect]
     Active Substance: ADALIMUMAB
     Indication: Uveitis
     Route: 058
     Dates: start: 20220715, end: 20230113
  2. HUMIRA [Suspect]
     Active Substance: ADALIMUMAB
     Indication: Tubulointerstitial nephritis and uveitis syndrome
  3. RASUVO [Concomitant]
     Active Substance: METHOTREXATE SODIUM
     Indication: Uveitis
     Route: 058
     Dates: start: 20221018, end: 20230126
  4. PRED FORTE [Concomitant]
     Active Substance: PREDNISOLONE ACETATE
     Indication: Uveitis
     Route: 047
     Dates: start: 20220712, end: 20230117
  5. FOLIC ACID [Concomitant]
     Active Substance: FOLIC ACID
     Indication: Uveitis
     Route: 065
     Dates: start: 20220414
  6. BRIMONIDINE [Concomitant]
     Active Substance: BRIMONIDINE TARTRATE
     Indication: Uveitis
     Dosage: TIME INTERVAL: 0.33333333 DAYS
     Route: 047
     Dates: start: 20220414
  7. PREDNISONE [Concomitant]
     Active Substance: PREDNISONE
     Indication: Uveitis
     Route: 048
     Dates: start: 20220620, end: 20221123
  8. PREDNISONE [Concomitant]
     Active Substance: PREDNISONE
     Indication: Uveitis
     Route: 048
  9. DUREZOL [Concomitant]
     Active Substance: DIFLUPREDNATE
     Indication: Uveitis
     Route: 047
     Dates: start: 20220726, end: 20230126

REACTIONS (2)
  - Brain stem glioma [Not Recovered/Not Resolved]
  - Brain neoplasm [Not Recovered/Not Resolved]

NARRATIVE: CASE EVENT DATE: 20230113
